FAERS Safety Report 7366166-9 (Version None)
Quarter: 2011Q1

REPORT INFORMATION
  Report Type: 
  Country: None (occurrence: None)
  Receive Date: 20110322
  Receipt Date: 20110308
  Transmission Date: 20110831
  Serious: Yes (Life-Threatening, Hospitalization, Other)
  Sender: FDA-Public Use
  Company Number: US-JNJFOC-20090904585

PATIENT
  Sex: Male
  Weight: 42.3 kg

DRUGS (7)
  1. PROBIOTIC [Concomitant]
  2. REMICADE [Suspect]
     Indication: INFLAMMATORY BOWEL DISEASE
     Dosage: TOTAL 2 DOSES
     Route: 042
     Dates: start: 20090505, end: 20090520
  3. SULFASALAZINE [Concomitant]
  4. MERCAPTOPURINE [Concomitant]
  5. FERROUS SULFATE TAB [Concomitant]
  6. REMICADE [Suspect]
     Route: 042
     Dates: start: 20090505, end: 20090520
  7. PREVACID [Concomitant]

REACTIONS (1)
  - CARDIOMYOPATHY [None]
